FAERS Safety Report 5136965-2 (Version None)
Quarter: 2006Q4

REPORT INFORMATION
  Report Type: 
  Country: None (occurrence: None)
  Receive Date: 20061030
  Receipt Date: 20060301
  Transmission Date: 20070319
  Serious: Yes (Hospitalization, Disabling)
  Sender: FDA-Public Use
  Company Number: JP-SP-2006-00512

PATIENT
  Age: 76 Year
  Sex: Male

DRUGS (4)
  1. IMMUCYST [Suspect]
     Indication: BLADDER CANCER
     Route: 043
     Dates: start: 20060203, end: 20060203
  2. IMMUCYST [Suspect]
     Route: 043
     Dates: start: 20060203, end: 20060203
  3. IMMUCYST [Suspect]
     Route: 043
     Dates: start: 20060203, end: 20060203
  4. IMMUCYST [Suspect]
     Route: 043
     Dates: start: 20060203, end: 20060203

REACTIONS (8)
  - ARTHRITIS [None]
  - CEREBRAL INFARCTION [None]
  - EPIDIDYMITIS [None]
  - PNEUMONIA [None]
  - PNEUMOTHORAX [None]
  - PYOTHORAX [None]
  - PYREXIA [None]
  - URETHRITIS [None]
